FAERS Safety Report 5860286-3 (Version None)
Quarter: 2008Q3

REPORT INFORMATION
  Report Type: 
  Country: None (occurrence: None)
  Receive Date: 20080827
  Receipt Date: 20080818
  Transmission Date: 20090109
  Serious: Yes (Hospitalization)
  Sender: FDA-Public Use
  Company Number: FR-ASTRAZENECA-2008CG01225

PATIENT
  Age: 73 Year
  Sex: Female

DRUGS (5)
  1. MOPRAL [Suspect]
     Route: 048
     Dates: start: 20060401, end: 20080617
  2. VALSARTAN [Suspect]
     Route: 048
     Dates: start: 20080201, end: 20080617
  3. BISOPROLOL FUMARATE [Concomitant]
     Dates: start: 20060401
  4. ASPIRIN [Concomitant]
     Dates: start: 20060401
  5. CORTANCYL [Concomitant]
     Dates: start: 20060401

REACTIONS (1)
  - RENAL FAILURE ACUTE [None]
